FAERS Safety Report 10158423 (Version 1)
Quarter: 2014Q2

REPORT INFORMATION
  Report Type: Spontaneous
  Country: US (occurrence: US)
  Receive Date: 20140507
  Receipt Date: 20140507
  Transmission Date: 20141212
  Serious: No
  Sender: FDA-Public Use
  Company Number: US-009507513-1404USA014758

PATIENT
  Age: 65 Year
  Sex: Female

DRUGS (3)
  1. ASMANEX TWISTHALER [Suspect]
     Indication: HYPERSENSITIVITY
     Dosage: UNK, PRN
     Route: 055
     Dates: start: 201404
  2. ZYRTEC [Concomitant]
  3. MUCINEX [Concomitant]

REACTIONS (4)
  - Dizziness [Not Recovered/Not Resolved]
  - Drug dose omission [Unknown]
  - Product quality issue [Unknown]
  - Drug administration error [Unknown]
